FAERS Safety Report 6167665-8 (Version None)
Quarter: 2009Q2

REPORT INFORMATION
  Report Type: 
  Country: None (occurrence: None)
  Receive Date: 20090424
  Receipt Date: 20090408
  Transmission Date: 20091009
  Serious: Yes (Other)
  Sender: FDA-Public Use
  Company Number: PHHY2009JP03191

PATIENT
  Sex: Female

DRUGS (6)
  1. GLEEVEC [Suspect]
     Indication: CHRONIC MYELOID LEUKAEMIA
     Dosage: UNK
     Route: 048
     Dates: start: 20060701, end: 20070101
  2. GLEEVEC [Suspect]
     Dosage: 100 MG/DAY
     Route: 048
     Dates: start: 20070901, end: 20071001
  3. GLEEVEC [Suspect]
     Dosage: 200 MG/DAY
     Route: 048
     Dates: start: 20071002, end: 20071002
  4. GLEEVEC [Suspect]
     Dosage: 300 MG/DAY
     Route: 048
     Dates: start: 20081003, end: 20090127
  5. PREDONINE [Concomitant]
     Indication: PROPHYLAXIS
     Dosage: 5 MG/DAY
     Route: 048
     Dates: start: 20071018
  6. THYRADIN [Concomitant]
     Indication: HYPOTHYROIDISM
     Dosage: 100 UG/DAY
     Route: 048
     Dates: start: 20070731

REACTIONS (7)
  - COUGH [None]
  - DRUG HYPERSENSITIVITY [None]
  - LUNG DISORDER [None]
  - PANCYTOPENIA [None]
  - PNEUMOCYSTIS JIROVECI PNEUMONIA [None]
  - PYREXIA [None]
  - RASH [None]
